FAERS Safety Report 4803495-4 (Version None)
Quarter: 2005Q4

REPORT INFORMATION
  Report Type: 
  Country: None (occurrence: None)
  Receive Date: 20051013
  Receipt Date: 20050930
  Transmission Date: 20060501
  Serious: Yes (Hospitalization)
  Sender: FDA-Public Use
  Company Number: 200512142BWH

PATIENT
  Age: 76 Year
  Sex: Male
  Weight: 81.7 kg

DRUGS (8)
  1. DACARBAZINE [Suspect]
     Indication: METASTATIC MALIGNANT MELANOMA
     Dosage: Q3WK, INTRAVENOUS
     Route: 042
     Dates: start: 20050819
  2. FLOMAX [Concomitant]
  3. AVODART [Concomitant]
  4. GLYBURIDE [Concomitant]
  5. LEVOTHYROXINE [Concomitant]
  6. SIMVASTATIN [Concomitant]
  7. LACTULOSE [Concomitant]
  8. ANCEF [Concomitant]

REACTIONS (2)
  - ANAEMIA [None]
  - HYPOGLYCAEMIA [None]
